FAERS Safety Report 7913795-7 (Version None)
Quarter: 2011Q4

REPORT INFORMATION
  Report Type: 
  Country: None (occurrence: None)
  Receive Date: 20111115
  Receipt Date: 20111108
  Transmission Date: 20120403
  Serious: Yes (Hospitalization, Other)
  Sender: FDA-Public Use
  Company Number: US-JNJFOC-20110400161

PATIENT
  Sex: Female

DRUGS (5)
  1. LEVAQUIN [Suspect]
     Indication: STAPHYLOCOCCAL INFECTION
     Route: 048
     Dates: start: 20090301
  2. LEVAQUIN [Suspect]
     Indication: SURGERY
     Route: 048
     Dates: start: 20090301
  3. METHYLPREDNISOLONE [Suspect]
     Indication: SWELLING
     Route: 065
  4. LEVAQUIN [Suspect]
     Indication: PYREXIA
     Route: 048
     Dates: start: 20090301
  5. LEVAQUIN [Suspect]
     Indication: INFLUENZA
     Route: 048
     Dates: start: 20090301

REACTIONS (3)
  - EPICONDYLITIS [None]
  - STAPHYLOCOCCAL INFECTION [None]
  - TENDON RUPTURE [None]
